FAERS Safety Report 5407706-6 (Version None)
Quarter: 2007Q3

REPORT INFORMATION
  Report Type: 
  Country: None (occurrence: None)
  Receive Date: 20070807
  Receipt Date: 20070731
  Transmission Date: 20080115
  Serious: Yes (Other)
  Sender: FDA-Public Use
  Company Number: GB-PFIZER INC-2007063920

PATIENT
  Age: 14 Year
  Sex: Male

DRUGS (3)
  1. PREDNISOLONE [Suspect]
  2. METHOTREXATE [Suspect]
  3. DICLOFENAC SODIUM [Suspect]

REACTIONS (5)
  - BLOOD CREATININE INCREASED [None]
  - BLOOD UREA INCREASED [None]
  - DEHYDRATION [None]
  - HERPES ZOSTER [None]
  - VOMITING [None]
